FAERS Safety Report 4809717-8 (Version None)
Quarter: 2005Q4

REPORT INFORMATION
  Report Type: 
  Country: None (occurrence: None)
  Receive Date: 20051024
  Receipt Date: 20051010
  Transmission Date: 20060501
  Serious: Yes (Other)
  Sender: FDA-Public Use
  Company Number: HQWYE994713OCT05

PATIENT
  Age: 35 Year
  Sex: Male

DRUGS (1)
  1. RAPAMUNE [Suspect]

REACTIONS (3)
  - ACUTE MYELOID LEUKAEMIA [None]
  - MOUTH ULCERATION [None]
  - SKIN ULCER [None]
